FAERS Safety Report 10015610 (Version 2)
Quarter: 2014Q1

REPORT INFORMATION
  Report Type: Spontaneous
  Country: JP (occurrence: JP)
  Receive Date: 20140317
  Receipt Date: 20140326
  Transmission Date: 20141002
  Serious: Yes (Other)
  Sender: FDA-Public Use
  Company Number: JP-ASTRAZENECA-2014SE18380

PATIENT
  Age: 74 Year
  Sex: Female

DRUGS (4)
  1. SEROQUEL [Suspect]
     Indication: SCHIZOPHRENIA
     Route: 048
     Dates: start: 20131228, end: 20140110
  2. SEROQUEL [Suspect]
     Indication: SCHIZOPHRENIA
     Route: 048
     Dates: start: 20140111
  3. WYPAX [Concomitant]
  4. DEPAS [Concomitant]
     Route: 048

REACTIONS (2)
  - Deafness bilateral [Not Recovered/Not Resolved]
  - Intentional drug misuse [Unknown]
